FAERS Safety Report 7558434-2 (Version None)
Quarter: 2011Q2

REPORT INFORMATION
  Report Type: 
  Country: None (occurrence: None)
  Receive Date: 20110620
  Receipt Date: 20110617
  Transmission Date: 20111010
  Serious: Yes (Other)
  Sender: FDA-Public Use
  Company Number: IT-GILEAD-2011-0039189

PATIENT
  Sex: Male
  Weight: 65 kg

DRUGS (1)
  1. VIREAD [Suspect]
     Indication: HEPATITIS B SURFACE ANTIGEN

REACTIONS (2)
  - PLASMACYTOMA [None]
  - OSTEOLYSIS [None]
